FAERS Safety Report 9890329 (Version 1)
Quarter: 2014Q1

REPORT INFORMATION
  Report Type: Spontaneous
  Country: US (occurrence: US)
  Receive Date: 20140212
  Receipt Date: 20140212
  Transmission Date: 20141002
  Serious: Yes (Other)
  Sender: FDA-Public Use
  Company Number: US-BEH-2014040481

PATIENT
  Sex: Female

DRUGS (1)
  1. HIZENTRA [Suspect]
     Indication: IMMUNODEFICIENCY COMMON VARIABLE
     Dosage: SINCE 2011
     Route: 058

REACTIONS (2)
  - Renal failure [Not Recovered/Not Resolved]
  - Sinusitis [Not Recovered/Not Resolved]
